FAERS Safety Report 17091797 (Version 1)
Quarter: 2019Q4

REPORT INFORMATION
  Report Type: Spontaneous
  Country: DE (occurrence: DE)
  Receive Date: 20191129
  Receipt Date: 20191129
  Transmission Date: 20200122
  Serious: Yes (Congenital Anomaly, Other)
  Sender: FDA-Public Use
  Company Number: DE-TEVA-2019-DE-1143031

PATIENT
  Age: 1 Day
  Sex: Male
  Weight: 2.55 kg

DRUGS (1)
  1. MIRTAZAPIN [Suspect]
     Active Substance: MIRTAZAPINE
     Indication: DEPRESSION
     Dosage: 7.5 [MG/D ]
     Route: 064
     Dates: start: 20171029, end: 20180719

REACTIONS (6)
  - Foetal exposure during pregnancy [Unknown]
  - Congenital hand malformation [Not Recovered/Not Resolved]
  - Ventricular septal defect [Recovered/Resolved]
  - CSF volume increased [Unknown]
  - Small for dates baby [Recovered/Resolved]
  - Atrial septal defect [Recovered/Resolved]

NARRATIVE: CASE EVENT DATE: 20180719
